FAERS Safety Report 17692806 (Version 10)
Quarter: 2020Q3

REPORT INFORMATION
  Report Type: Spontaneous
  Country: US (occurrence: US)
  Receive Date: 20200422
  Receipt Date: 20200817
  Transmission Date: 20201102
  Serious: Yes (Hospitalization, Other)
  Sender: FDA-Public Use
  Company Number: US-UNITED THERAPEUTICS-UNT-2020-006031

PATIENT
  Age: 52 Year
  Sex: Female
  Weight: 86.17 kg

DRUGS (12)
  1. TYVASO [Suspect]
     Active Substance: TREPROSTINIL
     Dosage: UNK
  2. TYVASO [Suspect]
     Active Substance: TREPROSTINIL
     Dosage: UNK
  3. AMBRISENTAN [Concomitant]
     Active Substance: AMBRISENTAN
     Indication: PRODUCT USED FOR UNKNOWN INDICATION
     Dosage: UNK
     Route: 065
  4. TYVASO [Suspect]
     Active Substance: TREPROSTINIL
     Dosage: UNK
  5. REVATIO [Concomitant]
     Active Substance: SILDENAFIL CITRATE
     Indication: PRODUCT USED FOR UNKNOWN INDICATION
     Dosage: UNK
     Route: 065
  6. TYVASO [Suspect]
     Active Substance: TREPROSTINIL
     Indication: PULMONARY ARTERIAL HYPERTENSION
     Dosage: UNK
     Dates: start: 20110920
  7. TYVASO [Suspect]
     Active Substance: TREPROSTINIL
     Dosage: 18?54 ?G, QID
  8. AZITHROMYCIN ANHYDROUS. [Suspect]
     Active Substance: AZITHROMYCIN ANHYDROUS
     Indication: PRODUCT USED FOR UNKNOWN INDICATION
     Dosage: UNK
     Route: 065
  9. LETAIRIS [Concomitant]
     Active Substance: AMBRISENTAN
     Indication: PRODUCT USED FOR UNKNOWN INDICATION
     Dosage: UNK
     Route: 065
  10. TYVASO [Suspect]
     Active Substance: TREPROSTINIL
     Dosage: UNK
  11. TYVASO [Suspect]
     Active Substance: TREPROSTINIL
     Dosage: UNK
  12. DOXYCYCLINE HYCLATE. [Suspect]
     Active Substance: DOXYCYCLINE HYCLATE
     Indication: COVID-19
     Dosage: UNK
     Route: 065

REACTIONS (13)
  - COVID-19 [Unknown]
  - Pain [Unknown]
  - Malaise [Unknown]
  - Pharyngitis streptococcal [Unknown]
  - Pruritus [Unknown]
  - Drug hypersensitivity [Unknown]
  - Blood pressure decreased [Unknown]
  - Cheilitis [Unknown]
  - Skin burning sensation [Unknown]
  - Pain in extremity [Recovering/Resolving]
  - Hypoaesthesia [Unknown]
  - Anxiety [Unknown]
  - Paraesthesia [Unknown]

NARRATIVE: CASE EVENT DATE: 20200713
